FAERS Safety Report 6897911-4 (Version None)
Quarter: 2010Q3

REPORT INFORMATION
  Report Type: 
  Country: None (occurrence: None)
  Receive Date: 20100802
  Receipt Date: 20070725
  Transmission Date: 20110219
  Serious: Yes (Other)
  Sender: FDA-Public Use
  Company Number: US-PFIZER INC-2007065023

PATIENT

DRUGS (1)
  1. LYRICA [Suspect]
     Dosage: TWICE DAILY (BID)

REACTIONS (1)
  - VISION BLURRED [None]
